FAERS Safety Report 18023956 (Version 5)
Quarter: 2020Q3

REPORT INFORMATION
  Report Type: Spontaneous
  Country: US (occurrence: US)
  Receive Date: 20200714
  Receipt Date: 20200901
  Transmission Date: 20201103
  Serious: No
  Sender: FDA-Public Use
  Company Number: US-TRIS PHARMA, INC.-20US009012

PATIENT

DRUGS (3)
  1. QUILLIVANT XR [Suspect]
     Active Substance: METHYLPHENIDATE HYDROCHLORIDE
     Dosage: 7 MILLILITER, MORNING
     Route: 048
  2. QUILLIVANT XR [Suspect]
     Active Substance: METHYLPHENIDATE HYDROCHLORIDE
     Indication: PRODUCT USED FOR UNKNOWN INDICATION
     Dosage: 7 MILLILITER, MORNING
     Route: 048
     Dates: start: 20200727
  3. QUILLIVANT XR [Suspect]
     Active Substance: METHYLPHENIDATE HYDROCHLORIDE
     Dosage: UNK
     Route: 048

REACTIONS (5)
  - Product taste abnormal [Unknown]
  - Liquid product physical issue [Unknown]
  - Vomiting [Unknown]
  - Illness [Unknown]
  - Nausea [Unknown]

NARRATIVE: CASE EVENT DATE: 20200702
